FAERS Safety Report 19034906 (Version 7)
Quarter: 2021Q2

REPORT INFORMATION
  Report Type: Spontaneous
  Country: US (occurrence: US)
  Receive Date: 20210320
  Receipt Date: 20210602
  Transmission Date: 20210717
  Serious: Yes (Other)
  Sender: FDA-Public Use
  Company Number: US-ORGANON-O2103USA000638

PATIENT
  Age: 34 Year
  Sex: Female
  Weight: 68.48 kg

DRUGS (2)
  1. NEXPLANON [Suspect]
     Active Substance: ETONOGESTREL
     Dosage: 1 IMPLANT, 3 YEARS OF USE (RIGHT UPPER ARM)
     Route: 059
     Dates: start: 20210303, end: 2021
  2. NEXPLANON [Suspect]
     Active Substance: ETONOGESTREL
     Indication: CONTRACEPTION
     Dosage: 1 IMPLANT (FIRST IMPLANT PLACED IN LEFT ARM)  3 YEARS OF USE
     Route: 059
     Dates: start: 2018, end: 20210303

REACTIONS (5)
  - Device dislocation [Recovered/Resolved]
  - No adverse event [Unknown]
  - Device placement issue [Unknown]
  - Complication of device removal [Recovered/Resolved]
  - Complication associated with device [Recovered/Resolved]

NARRATIVE: CASE EVENT DATE: 202103
